FAERS Safety Report 5236285-1 (Version None)
Quarter: 2007Q1

REPORT INFORMATION
  Report Type: 
  Country: None (occurrence: None)
  Receive Date: 20070212
  Receipt Date: 20070208
  Transmission Date: 20070707
  Serious: Yes (Death, Other)
  Sender: FDA-Public Use
  Company Number: NL-BOEHRINGER INGELHEIM PHARMACEUTICALS, INC.-2007-DE-00800GD

PATIENT

DRUGS (1)
  1. ASASANTIN [Suspect]
     Indication: ANTIPLATELET THERAPY
     Dosage: 50 MG ASPIRIN AND 400 MG DIPYRIDAMOLE
     Route: 048

REACTIONS (3)
  - CORONARY ARTERY DISEASE [None]
  - DEATH [None]
  - MYOCARDIAL INFARCTION [None]
